FAERS Safety Report 18485544 (Version 1)
Quarter: 2020Q4

REPORT INFORMATION
  Report Type: Spontaneous
  Country: US (occurrence: US)
  Receive Date: 20201110
  Receipt Date: 20201110
  Transmission Date: 20210114
  Serious: Yes (Hospitalization)
  Sender: FDA-Public Use
  Company Number: US-MYLANLABS-2020M1093826

PATIENT
  Age: 48 Year
  Sex: Male

DRUGS (5)
  1. CLOZAPINE. [Concomitant]
     Active Substance: CLOZAPINE
     Dosage: 150MG AT 9:00AM AND 200MG AT 9:00PM
     Route: 048
  2. ARIPIPRAZOLE. [Suspect]
     Active Substance: ARIPIPRAZOLE
     Indication: SCHIZOPHRENIA
     Dosage: THE FIRST DOSE OF ARIPIPRAZOLE WAS 5MG, GIVEN ON NOVEMBER 9
     Route: 065
  3. ARIPIPRAZOLE. [Suspect]
     Active Substance: ARIPIPRAZOLE
     Dosage: TITRATED UP TO 15MG BY NOVEMBER 15
     Route: 065
  4. PALIPERIDONE. [Concomitant]
     Active Substance: PALIPERIDONE
     Indication: SCHIZOPHRENIA
     Dosage: 234 MILLIGRAM, 4XW
     Route: 030
  5. CLOZAPINE. [Concomitant]
     Active Substance: CLOZAPINE
     Indication: SCHIZOPHRENIA
     Dosage: 150MG AT 9:00AM AND 300MG AT 9:00PM
     Route: 048

REACTIONS (1)
  - Pleurothotonus [Recovering/Resolving]
